FAERS Safety Report 7299373-4 (Version None)
Quarter: 2011Q1

REPORT INFORMATION
  Report Type: 
  Country: None (occurrence: None)
  Receive Date: 20110217
  Receipt Date: 20110210
  Transmission Date: 20110831
  Serious: Yes (Other)
  Sender: FDA-Public Use
  Company Number: B0683264A

PATIENT
  Sex: Female

DRUGS (2)
  1. VENTOLIN [Suspect]
     Route: 065
  2. SYMBICORT [Concomitant]
     Route: 065

REACTIONS (4)
  - ASTHMA [None]
  - WHEEZING [None]
  - PRODUCT QUALITY ISSUE [None]
  - DRUG INEFFECTIVE [None]
